FAERS Safety Report 6709120-X (Version None)
Quarter: 2010Q2

REPORT INFORMATION
  Report Type: 
  Country: None (occurrence: None)
  Receive Date: 20100429
  Receipt Date: 20100420
  Transmission Date: 20101027
  Serious: Yes (Death)
  Sender: FDA-Public Use
  Company Number: TPG2010A00022

PATIENT
  Age: 61 Year
  Sex: Male

DRUGS (27)
  1. LANSOPRAZOLE [Suspect]
     Indication: DRUG USE FOR UNKNOWN INDICATION
     Dosage: 15 MCI (15 MCGI, 0-0-1-0) PER ORAL
     Route: 048
     Dates: start: 20091020, end: 20091028
  2. ARIXTRA [Suspect]
     Indication: DRUG USE FOR UNKNOWN INDICATION
     Dosage: 2.5 MG (2.5 MG, 1 IN 1 D) SUBCUTANEOUS
     Route: 058
     Dates: start: 20091020, end: 20091028
  3. ASPIRIN [Suspect]
     Indication: DRUG USE FOR UNKNOWN INDICATION
     Dosage: 100 MG (100 MG, 0-1-0-0) PER ORAL
     Route: 048
     Dates: start: 20091020, end: 20091028
  4. CARBAMAZEPINE [Suspect]
     Indication: DRUG USE FOR UNKNOWN INDICATION
     Dosage: 600 MG (200 MG, 1-1-1-0) PER ORAL
     Route: 048
     Dates: start: 20091020, end: 20091028
  5. SIMVASTATIN [Suspect]
     Indication: DRUG USE FOR UNKNOWN INDICATION
     Dosage: 20 MG (20 MG, 0-0-1-0) PER ORAL
     Route: 048
     Dates: start: 20091025, end: 20091027
  6. METOPROLOL SUCCINATE [Suspect]
     Indication: DRUG USE FOR UNKNOWN INDICATION
     Dosage: (47,5 MG AND 23,25 MG) (, 1-0-0.5,0) PER ORAL
     Route: 048
     Dates: start: 20091020, end: 20091024
  7. LORAZEPAM [Suspect]
     Indication: DRUG USE FOR UNKNOWN INDICATION
     Dosage: 4 MG (1 MG, 1-1-1-1) PER ORAL; 2 MG (1 MG, 1-0-0-1) PER ORAL
     Route: 048
     Dates: start: 20091020, end: 20091026
  8. LORAZEPAM [Suspect]
     Indication: DRUG USE FOR UNKNOWN INDICATION
     Dosage: 4 MG (1 MG, 1-1-1-1) PER ORAL; 2 MG (1 MG, 1-0-0-1) PER ORAL
     Route: 048
     Dates: start: 20091027, end: 20091027
  9. RAMIPRIL [Suspect]
     Indication: DRUG USE FOR UNKNOWN INDICATION
     Dosage: 2.5 MG (2.5 MG, 1-0-0-0) PER ORAL
     Route: 048
     Dates: start: 20091021, end: 20091024
  10. ZOPICLON (ZOPICLONE) [Suspect]
     Indication: DRUG USE FOR UNKNOWN INDICATION
     Dosage: 7.5 MG (7.5 MG, 0-0-0-1) PER ORAL
     Route: 048
     Dates: start: 20091020, end: 20091026
  11. EUNERPAN (MELPERONE HYDROCHLORIDE) [Suspect]
     Indication: DRUG USE FOR UNKNOWN INDICATION
     Dosage: 25 MG (25 MG, 0-0-0-1) INTRAVENOUS
     Route: 042
     Dates: start: 20091020, end: 20091027
  12. CLONIDINE HCL [Suspect]
     Indication: DRUG USE FOR UNKNOWN INDICATION
     Dosage: 0.15 MG (0.075 MG, 1-0-1-0) PER ORAL
     Route: 048
     Dates: start: 20091020, end: 20091024
  13. TORSEMIDE [Suspect]
     Indication: DRUG USE FOR UNKNOWN INDICATION
     Dosage: 30 MG (10 MG, 1-1-1-0) PER ORAL; 20 MG (10 MG, 1-1-0-0) PER ORAL; 10 MG (10 MG, 1-0-0-0) PER ORAL
     Route: 048
     Dates: start: 20091020, end: 20091020
  14. TORSEMIDE [Suspect]
     Indication: DRUG USE FOR UNKNOWN INDICATION
     Dosage: 30 MG (10 MG, 1-1-1-0) PER ORAL; 20 MG (10 MG, 1-1-0-0) PER ORAL; 10 MG (10 MG, 1-0-0-0) PER ORAL
     Route: 048
     Dates: start: 20091021, end: 20091022
  15. TORSEMIDE [Suspect]
     Indication: DRUG USE FOR UNKNOWN INDICATION
     Dosage: 30 MG (10 MG, 1-1-1-0) PER ORAL; 20 MG (10 MG, 1-1-0-0) PER ORAL; 10 MG (10 MG, 1-0-0-0) PER ORAL
     Route: 048
     Dates: start: 20091023, end: 20091026
  16. TORSEMIDE [Suspect]
     Indication: DRUG USE FOR UNKNOWN INDICATION
     Dosage: 30 MG (10 MG, 1-1-1-0) PER ORAL; 20 MG (10 MG, 1-1-0-0) PER ORAL; 10 MG (10 MG, 1-0-0-0) PER ORAL
     Route: 048
     Dates: start: 20091027, end: 20091027
  17. ARTERENOL (NOREPINEPHRINE HYDROCHLORIDE) [Suspect]
     Indication: DRUG USE FOR UNKNOWN INDICATION
     Dosage: SUBCUTANEOUS
     Route: 058
     Dates: start: 20091025, end: 20091027
  18. ARTERENOL (NOREPINEPHRINE HYDROCHLORIDE) [Suspect]
     Indication: DRUG USE FOR UNKNOWN INDICATION
     Dosage: SUBCUTANEOUS
     Route: 058
     Dates: start: 20091028
  19. FLUNITRAZEPAM (FLUNITRAZEPAM) [Suspect]
     Indication: DRUG USE FOR UNKNOWN INDICATION
     Dosage: 1 MG (1 MG, 0-0-0-1) PER ORAL
     Route: 048
     Dates: start: 20091027, end: 20091028
  20. FUROSEMIDE [Suspect]
     Indication: DRUG USE FOR UNKNOWN INDICATION
     Dosage: 60 MG (20 MG, 3 IN 1 D) INTRAVENOUS
     Route: 042
     Dates: start: 20091028
  21. PRIMAXIN [Suspect]
     Indication: DRUG USE FOR UNKNOWN INDICATION
     Dosage: 3 GM (1 GM, 3 IN 1 D) INTRAVENOUS
     Route: 042
     Dates: start: 20091028
  22. SULBACTAM/PIPERACILLIN (SULBACTAM) [Suspect]
     Indication: DRUG USE FOR UNKNOWN INDICATION
     Dosage: 3 GM (1 GM, 3 IN 1 D) INTRAVENOUS
     Route: 042
     Dates: start: 20091025, end: 20091027
  23. SULBACTAM/PIPERACILLIN (PIPERACILLIN) [Suspect]
     Indication: DRUG USE FOR UNKNOWN INDICATION
     Dosage: (3 IN 1 D) INTRAVENOUS
     Route: 042
     Dates: start: 20091025, end: 20091027
  24. BERLINSULIN H (INSULIN, INSULIN HUMAN INJECTION, ISOPHANE) [Concomitant]
  25. BERLINSULIN B (INSULIN INJECTION, ISOPHANE) [Concomitant]
  26. NAC (ACETYLCYSTEINE) [Concomitant]
  27. KALINOR (POTASSIUM CARBONATE, POTASSIUM CITRATE) [Concomitant]

REACTIONS (6)
  - CARDIOVASCULAR DISORDER [None]
  - CHROMATURIA [None]
  - DECUBITUS ULCER [None]
  - PYREXIA [None]
  - RENAL FAILURE ACUTE [None]
  - RHABDOMYOLYSIS [None]
